FAERS Safety Report 11619325 (Version 1)
Quarter: 2015Q4

REPORT INFORMATION
  Report Type: Report from Study
  Country: NL (occurrence: NL)
  Receive Date: 20151012
  Receipt Date: 20151012
  Transmission Date: 20160304
  Serious: Yes (Hospitalization, Other)
  Sender: FDA-Public Use
  Company Number: NL-GLAXOSMITHKLINE-NL2013GSK000348

PATIENT
  Age: 38 Year
  Sex: Male
  Weight: 77.2 kg

DRUGS (7)
  1. PAZOPANIB [Suspect]
     Active Substance: PAZOPANIB
     Indication: SARCOMA
     Dosage: 800 MG, QD
     Route: 048
     Dates: start: 20121127
  2. ENALAPRIL [Concomitant]
     Active Substance: ENALAPRIL
  3. AMLODIPINE [Concomitant]
     Active Substance: AMLODIPINE BESYLATE
  4. PANTOPRAZOL [Concomitant]
     Active Substance: PANTOPRAZOLE SODIUM
  5. MOVICOLON [Concomitant]
     Active Substance: POLYETHYLENE GLYCOL 3350\POTASSIUM CHLORIDE\SODIUM BICARBONATE\SODIUM CHLORIDE
  6. LOPERAMIDE [Concomitant]
     Active Substance: LOPERAMIDE
  7. MORPHINE [Concomitant]
     Active Substance: MORPHINE

REACTIONS (1)
  - Haemothorax [Recovering/Resolving]

NARRATIVE: CASE EVENT DATE: 20130511
